FAERS Safety Report 21283346 (Version 2)
Quarter: 2022Q3

REPORT INFORMATION
  Report Type: Spontaneous
  Country: US (occurrence: US)
  Receive Date: 20220901
  Receipt Date: 20220912
  Transmission Date: 20221027
  Serious: Yes (Other)
  Sender: FDA-Public Use
  Company Number: US-009507513-2208USA010747

PATIENT
  Age: 29 Year
  Sex: Male

DRUGS (5)
  1. TEMODAR [Suspect]
     Active Substance: TEMOZOLOMIDE
     Indication: Astrocytoma malignant
     Dosage: 50 MILLIGRAM/SQ. METER, QD; 6 WEEKS ON/2 WEEKS OFF
     Route: 048
  2. TEMODAR [Suspect]
     Active Substance: TEMOZOLOMIDE
     Indication: Isocitrate dehydrogenase gene mutation
  3. OLAPARIB [Suspect]
     Active Substance: OLAPARIB
     Indication: Astrocytoma malignant
     Dosage: 150 MILLIGRAM, TIW; 6 WEEKS ON/2 WEEKS OFF
     Route: 048
  4. OLAPARIB [Suspect]
     Active Substance: OLAPARIB
     Indication: Isocitrate dehydrogenase gene mutation
  5. KEYTRUDA [Concomitant]
     Active Substance: PEMBROLIZUMAB

REACTIONS (3)
  - Product use issue [Unknown]
  - Fatigue [Unknown]
  - Nausea [Unknown]
